FAERS Safety Report 14769990 (Version 1)
Quarter: 2018Q2

REPORT INFORMATION
  Report Type: Spontaneous
  Country: IT (occurrence: IT)
  Receive Date: 20180417
  Receipt Date: 20180417
  Transmission Date: 20180711
  Serious: Yes (Other)
  Sender: FDA-Public Use
  Company Number: IT-TEVA-2018-IT-882340

PATIENT
  Age: 56 Year
  Sex: Male

DRUGS (1)
  1. DOXAZOSIN [Suspect]
     Active Substance: DOXAZOSIN\DOXAZOSIN MESYLATE
     Indication: HYPERTENSION
     Route: 048

REACTIONS (6)
  - Vomiting [Unknown]
  - Syncope [Unknown]
  - Drug abuse [Unknown]
  - Hypotension [Unknown]
  - Hyperhidrosis [Unknown]
  - Loss of consciousness [Unknown]
